FAERS Safety Report 6318383-4 (Version None)
Quarter: 2009Q3

REPORT INFORMATION
  Report Type: 
  Country: None (occurrence: None)
  Receive Date: 20090821
  Receipt Date: 20090813
  Transmission Date: 20100115
  Serious: Yes (Other)
  Sender: FDA-Public Use
  Company Number: US-PFIZER INC-2009255208

PATIENT

DRUGS (6)
  1. CELEBREX [Suspect]
     Indication: ARTHRITIS
  2. HYDROCHLOROTHIAZIDE [Concomitant]
  3. ATENOLOL [Concomitant]
  4. ASPIRIN [Concomitant]
  5. PREDNISONE [Concomitant]
  6. OSTEO BI-FLEX [Concomitant]

REACTIONS (2)
  - HYPERSENSITIVITY [None]
  - RHEUMATOID ARTHRITIS [None]
